FAERS Safety Report 8163564-0 (Version None)
Quarter: 2012Q1

REPORT INFORMATION
  Report Type: 
  Country: None (occurrence: None)
  Receive Date: 20120224
  Receipt Date: 20120216
  Transmission Date: 20120608
  Serious: Yes (Hospitalization)
  Sender: FDA-Public Use
  Company Number: GB-JNJFOC-20120210140

PATIENT
  Sex: Male

DRUGS (5)
  1. ACETAMINOPHEN [Concomitant]
     Indication: PROCEDURAL PAIN
     Dates: start: 20110503, end: 20110601
  2. RIVAROXABAN [Suspect]
     Indication: THROMBOSIS PROPHYLAXIS
     Route: 048
     Dates: start: 20110506, end: 20110512
  3. IBUPROFEN [Concomitant]
     Indication: PROCEDURAL PAIN
     Dates: start: 20110503, end: 20110512
  4. CODEINE PHOSPHATE [Concomitant]
     Indication: PROCEDURAL PAIN
     Dates: end: 20110601
  5. ALLOPURINOL [Concomitant]
     Indication: GOUT

REACTIONS (3)
  - HAEMOGLOBIN DECREASED [None]
  - DUODENITIS [None]
  - ULCER [None]
